FAERS Safety Report 10397717 (Version 2)
Quarter: 2014Q3

REPORT INFORMATION
  Report Type: Spontaneous
  Country: AT (occurrence: AT)
  Receive Date: 20140821
  Receipt Date: 20140917
  Transmission Date: 20150326
  Serious: Yes (Hospitalization)
  Sender: FDA-Public Use
  Company Number: AT-IPSEN BIOPHARMACEUTICALS, INC.-2014-4409

PATIENT
  Age: 26 Year
  Sex: Female
  Weight: 48 kg

DRUGS (2)
  1. DYSPORT [Suspect]
     Active Substance: ABOBOTULINUMTOXINA
     Indication: HYPERHIDROSIS
     Dosage: 200 UNITS
     Route: 058
     Dates: start: 20140520, end: 20140520
  2. CISCUTAN [Concomitant]
     Indication: ACNE
     Route: 065
     Dates: start: 201306, end: 20140515

REACTIONS (27)
  - Neck pain [Recovering/Resolving]
  - Respiratory distress [Recovering/Resolving]
  - Chest pain [Unknown]
  - Circulatory collapse [Recovered/Resolved]
  - Dry mouth [Recovering/Resolving]
  - Pallor [Recovering/Resolving]
  - Weight decreased [Recovering/Resolving]
  - Muscle contractions involuntary [Recovering/Resolving]
  - Dysphagia [Not Recovered/Not Resolved]
  - Gastrointestinal pain [Recovering/Resolving]
  - Insomnia [Recovering/Resolving]
  - Myalgia [Recovering/Resolving]
  - Asthenia [Recovering/Resolving]
  - Nausea [Recovering/Resolving]
  - Appetite disorder [Recovering/Resolving]
  - Pruritus [Recovering/Resolving]
  - Incorrect route of drug administration [Unknown]
  - Sensory disturbance [Recovering/Resolving]
  - Disturbance in attention [Unknown]
  - Dyspnoea [Unknown]
  - Influenza like illness [Recovering/Resolving]
  - Vision blurred [Recovering/Resolving]
  - Headache [Recovering/Resolving]
  - Syncope [Unknown]
  - Dizziness [Unknown]
  - Gastrooesophageal reflux disease [Unknown]
  - Fatigue [Recovering/Resolving]

NARRATIVE: CASE EVENT DATE: 20140521
